FAERS Safety Report 15839317 (Version 1)
Quarter: 2019Q1

REPORT INFORMATION
  Report Type: Spontaneous
  Country: DE (occurrence: DE)
  Receive Date: 20190117
  Receipt Date: 20190117
  Transmission Date: 20190417
  Serious: Yes (Life-Threatening, Other)
  Sender: FDA-Public Use
  Company Number: DE-JNJFOC-20190116613

PATIENT
  Age: 8 Decade
  Sex: Female

DRUGS (6)
  1. AKINETON [Concomitant]
     Active Substance: BIPERIDEN HYDROCHLORIDE
     Route: 065
  2. ABILIFY [Concomitant]
     Active Substance: ARIPIPRAZOLE
     Route: 065
  3. RISPERDAL CONSTA [Suspect]
     Active Substance: RISPERIDONE
     Indication: SCHIZOPHRENIA
     Route: 030
     Dates: start: 201711
  4. RISPERDAL CONSTA [Suspect]
     Active Substance: RISPERIDONE
     Indication: DEPRESSION
     Route: 030
     Dates: start: 201711
  5. RISPERDAL CONSTA [Suspect]
     Active Substance: RISPERIDONE
     Indication: DEPRESSION
     Route: 030
     Dates: start: 2017, end: 20180103
  6. RISPERDAL CONSTA [Suspect]
     Active Substance: RISPERIDONE
     Indication: SCHIZOPHRENIA
     Route: 030
     Dates: start: 2017, end: 20180103

REACTIONS (1)
  - Suicide attempt [Unknown]

NARRATIVE: CASE EVENT DATE: 201801
